FAERS Safety Report 8720641 (Version 2)
Quarter: 2012Q4

REPORT INFORMATION
  Report Type: 
  Country: US (occurrence: US)
  Receive Date: 20120813
  Receipt Date: 20121005
  Transmission Date: 20130627
  Serious: Yes (Death, Other)
  Sender: FDA-Public Use
  Company Number: US-ELI_LILLY_AND_COMPANY-US201208002797

PATIENT
  Age: 64 None

DRUGS (1)
  1. ALIMTA [Suspect]
     Dosage: UNK, unknown
     Route: 065
     Dates: start: 20110725

REACTIONS (1)
  - Neoplasm progression [Fatal]
